FAERS Safety Report 8594870-3 (Version None)
Quarter: 2012Q3

REPORT INFORMATION
  Report Type: 
  Country: None (occurrence: None)
  Receive Date: 20120815
  Receipt Date: 20120807
  Transmission Date: 20120928
  Serious: Yes (Death, Hospitalization, Other)
  Sender: FDA-Public Use
  Company Number: NL-ASTELLAS-2012US006903

PATIENT
  Sex: Male
  Weight: 75 kg

DRUGS (19)
  1. GDC-0941 [Suspect]
     Dosage: 260 DF, UID/QD
     Route: 048
     Dates: end: 20120730
  2. RANITIDINE [Concomitant]
     Indication: GASTROOESOPHAGEAL REFLUX DISEASE
     Dosage: 300 MG, UNKNOWN/D
     Route: 048
     Dates: start: 20120608
  3. DOMPERIDON                         /00498201/ [Concomitant]
     Indication: ABDOMINAL DISCOMFORT
     Dosage: 10 MG, UID/QD
     Route: 048
     Dates: start: 20120510
  4. ACETAMINOPHEN W/ CODEINE [Concomitant]
     Indication: PAIN
     Dosage: 500/200 MG, UNKNOWN/D
     Route: 048
  5. ERLOTINIB HYDROCHLORIDE [Suspect]
     Indication: NEOPLASM
     Dosage: 100 MG, UID/QD
     Route: 048
     Dates: end: 20120623
  6. METRONIDAZOLE [Concomitant]
     Indication: RASH
     Dosage: 1 %, UNKNOWN/D
     Route: 061
     Dates: start: 20120621, end: 20120625
  7. GDC-0941 [Suspect]
     Dosage: 340 DF, UID/QD
     Route: 048
  8. TEMAZEPAM [Concomitant]
     Indication: INSOMNIA
     Dosage: 20 MG, UNKNOWN/D
     Route: 048
  9. ERLOTINIB HYDROCHLORIDE [Suspect]
     Dosage: 100 MG, UID/QD
     Route: 048
  10. ERLOTINIB HYDROCHLORIDE [Suspect]
     Dosage: 50 MG, UID/QD
     Route: 048
     Dates: end: 20120730
  11. GDC-0941 [Suspect]
     Dosage: 250 DF, UID/QD
     Route: 048
     Dates: end: 20120709
  12. MINOCYCLINE HCL [Concomitant]
     Dosage: 200 MG, UNKNOWN/D
     Route: 048
     Dates: start: 20120621, end: 20120710
  13. GDC-0941 [Suspect]
     Indication: NEOPLASM
     Dosage: 340 DF, UID/QD
     Route: 048
     Dates: end: 20120623
  14. DEXAMETHASONE [Concomitant]
     Indication: CHRONIC OBSTRUCTIVE PULMONARY DISEASE
     Dosage: 1 MG, UNKNOWN/D
     Route: 048
  15. ACETAMINOPHEN W/ CODEINE [Concomitant]
     Indication: COUGH
  16. ERLOTINIB HYDROCHLORIDE [Suspect]
     Dosage: 100 MG, UID/QD
     Route: 048
     Dates: end: 20120709
  17. GDC-0941 [Suspect]
     Dosage: 260 DF, UID/QD
     Route: 048
  18. MINOCYCLINE HCL [Concomitant]
     Indication: ERYTHEMA MULTIFORME
     Dosage: 100 MG, UNKNOWN/D
     Route: 048
     Dates: start: 20120618, end: 20120621
  19. TOPICORTE [Concomitant]
     Indication: ERYTHEMA MULTIFORME
     Dosage: UNK
     Route: 061
     Dates: start: 20120625

REACTIONS (5)
  - PULMONARY HAEMORRHAGE [None]
  - OESOPHAGEAL FISTULA [None]
  - PNEUMONIA [None]
  - ARTERIAL HAEMORRHAGE [None]
  - NEOPLASM MALIGNANT [None]
